FAERS Safety Report 9011955 (Version 1)
Quarter: 2013Q1

REPORT INFORMATION
  Report Type: Spontaneous
  Country: IN (occurrence: IN)
  Receive Date: 20130107
  Receipt Date: 20130107
  Transmission Date: 20140127
  Serious: Yes (Other)
  Sender: FDA-Public Use
  Company Number: IN-ROCHE-1177164

PATIENT
  Age: 79 Year
  Sex: Female

DRUGS (2)
  1. RANIBIZUMAB [Suspect]
     Indication: DIABETES MELLITUS
     Route: 050
     Dates: start: 20120918
  2. RANIBIZUMAB [Suspect]
     Route: 050
     Dates: start: 20121107

REACTIONS (1)
  - Lens disorder [Not Recovered/Not Resolved]
